FAERS Safety Report 19712662 (Version 3)
Quarter: 2024Q3

REPORT INFORMATION
  Report Type: Spontaneous
  Country: US (occurrence: US)
  Receive Date: 20210816
  Receipt Date: 20240916
  Transmission Date: 20241017
  Serious: Yes (Death, Other)
  Sender: NOVARTIS
  Company Number: US-NOVARTISTESTPH-NVSC2021US184873

PATIENT
  Age: 66 Year
  Sex: Male
  Weight: 61.5 kg

DRUGS (1)
  1. KYMRIAH [Suspect]
     Active Substance: TISAGENLECLEUCEL
     Indication: Diffuse large B-cell lymphoma
     Dosage: UNK, ONCE/SINGLE
     Route: 042
     Dates: start: 20210505, end: 20210505

REACTIONS (14)
  - Diffuse large B-cell lymphoma [Fatal]
  - Malignant neoplasm progression [Fatal]
  - Cytokine release syndrome [Unknown]
  - Immune effector cell-associated neurotoxicity syndrome [Unknown]
  - Pyrexia [Unknown]
  - Organ failure [Unknown]
  - Decreased appetite [Unknown]
  - Memory impairment [Unknown]
  - Fatigue [Unknown]
  - Diarrhoea [Unknown]
  - Agitation [Unknown]
  - Tremor [Unknown]
  - Confusional state [Unknown]
  - Tachycardia [Unknown]

NARRATIVE: CASE EVENT DATE: 20210506
